FAERS Safety Report 17367825 (Version 1)
Quarter: 2020Q1

REPORT INFORMATION
  Report Type: Spontaneous
  Country: JP (occurrence: JP)
  Receive Date: 20200204
  Receipt Date: 20200204
  Transmission Date: 20200409
  Serious: Yes (Hospitalization, Other)
  Sender: FDA-Public Use
  Company Number: JP-SAKK-2020SA025588AA

PATIENT

DRUGS (8)
  1. IRINOTECAN [Concomitant]
     Active Substance: IRINOTECAN
     Indication: RECTOSIGMOID CANCER
     Route: 065
  2. ZALTRAP [Suspect]
     Active Substance: ZIV-AFLIBERCEPT
     Indication: METASTASES TO BONE
  3. 5-FU [FLUOROURACIL] [Concomitant]
     Active Substance: FLUOROURACIL
     Indication: RECTOSIGMOID CANCER
     Route: 065
  4. LEUCOVORIN [CALCIUM FOLINATE] [Concomitant]
     Active Substance: LEUCOVORIN
     Indication: METASTASES TO BONE
  5. 5-FU [FLUOROURACIL] [Concomitant]
     Active Substance: FLUOROURACIL
     Indication: METASTASES TO BONE
  6. LEUCOVORIN [CALCIUM FOLINATE] [Concomitant]
     Active Substance: LEUCOVORIN
     Indication: RECTOSIGMOID CANCER
     Route: 065
  7. IRINOTECAN [Concomitant]
     Active Substance: IRINOTECAN
     Indication: METASTASES TO BONE
  8. ZALTRAP [Suspect]
     Active Substance: ZIV-AFLIBERCEPT
     Indication: RECTOSIGMOID CANCER
     Dosage: UNK
     Route: 041

REACTIONS (4)
  - Immobile [Not Recovered/Not Resolved]
  - Oral pain [Not Recovered/Not Resolved]
  - Eating disorder [Not Recovered/Not Resolved]
  - Oral disorder [Not Recovered/Not Resolved]
